FAERS Safety Report 8820109 (Version 1)
Quarter: 2012Q4

REPORT INFORMATION
  Report Type: Report from Study
  Country: CA (occurrence: CA)
  Receive Date: 20121001
  Receipt Date: 20121001
  Transmission Date: 20130627
  Serious: Yes (Other)
  Sender: FDA-Public Use
  Company Number: CA-UCBSA-067692

PATIENT
  Age: 31 Year
  Sex: Male
  Weight: 77.11 kg

DRUGS (8)
  1. CIMZIA [Suspect]
     Indication: UVEITIS
     Route: 058
     Dates: start: 20111230, end: 2012
  2. CIMZIA [Suspect]
     Indication: ANKYLOSING SPONDYLITIS
     Route: 058
     Dates: start: 20111230, end: 2012
  3. CIMZIA [Suspect]
     Indication: UVEITIS
     Route: 058
     Dates: start: 20111115, end: 20111216
  4. CIMZIA [Suspect]
     Indication: ANKYLOSING SPONDYLITIS
     Route: 058
     Dates: start: 20111115, end: 20111216
  5. FOLIC ACID [Concomitant]
     Route: 048
     Dates: start: 201109
  6. METHOTREXATE [Concomitant]
     Indication: ANKYLOSING SPONDYLITIS
     Route: 048
     Dates: start: 201109
  7. PANTOLOC [Concomitant]
     Route: 048
     Dates: start: 201109
  8. PREDFORT [Concomitant]
     Indication: UVEITIS
     Dosage: 1 DROP, 1 %

REACTIONS (2)
  - Oral herpes [Not Recovered/Not Resolved]
  - Depression [Not Recovered/Not Resolved]
